FAERS Safety Report 7884487-8 (Version None)
Quarter: 2011Q4

REPORT INFORMATION
  Report Type: 
  Country: None (occurrence: None)
  Receive Date: 20111102
  Receipt Date: 20111018
  Transmission Date: 20120403
  Serious: Yes (Hospitalization)
  Sender: FDA-Public Use
  Company Number: SE-BAUSCH-2011BL007107

PATIENT
  Age: 76 Year
  Sex: Female

DRUGS (3)
  1. ASPIRIN [Concomitant]
     Route: 048
  2. TROPICAMIDE [Suspect]
     Indication: OPHTHALMOLOGICAL EXAMINATION
     Route: 065
     Dates: start: 20110818, end: 20110818
  3. ATENOLOL [Concomitant]

REACTIONS (1)
  - ANAPHYLACTIC REACTION [None]
